FAERS Safety Report 24291142 (Version 1)
Quarter: 2024Q3

REPORT INFORMATION
  Report Type: Spontaneous
  Country: CN (occurrence: CN)
  Receive Date: 20240906
  Receipt Date: 20240906
  Transmission Date: 20241017
  Serious: Yes (Other)
  Sender: AMERICAN REGENT
  Company Number: CN-AMERICAN REGENT INC-2024003373

PATIENT
  Age: 84 Year
  Sex: Female
  Weight: 50 kg

DRUGS (1)
  1. FERINJECT [Suspect]
     Active Substance: FERRIC CARBOXYMALTOSE
     Indication: Anaemia
     Dosage: 500 MG DILUTED IN 0.9% NACL 100ML
     Dates: start: 20240821, end: 20240821

REACTIONS (1)
  - Tongue paralysis [Recovering/Resolving]

NARRATIVE: CASE EVENT DATE: 20240821
